FAERS Safety Report 24314805 (Version 2)
Quarter: 2025Q1

REPORT INFORMATION
  Report Type: Spontaneous
  Country: CA (occurrence: CA)
  Receive Date: 20240913
  Receipt Date: 20250208
  Transmission Date: 20250408
  Serious: Yes (Other)
  Sender: AUROBINDO
  Company Number: CA-AUROBINDO-AUR-APL-2024-044682

PATIENT
  Age: 25 Year
  Sex: Female

DRUGS (8)
  1. VALACYCLOVIR HYDROCHLORIDE [Suspect]
     Active Substance: VALACYCLOVIR HYDROCHLORIDE
     Indication: Evidence based treatment
     Route: 065
  2. TOZINAMERAN [Suspect]
     Active Substance: TOZINAMERAN
     Indication: COVID-19 immunisation
     Route: 065
  3. LOTEPREDNOL ETABONATE [Suspect]
     Active Substance: LOTEPREDNOL ETABONATE
     Indication: Punctate keratitis
     Dosage: UNK, FOUR TIMES/DAY FOLLOWED BY A WEEKLY TAPERING SCHEDULE
     Route: 065
  4. LOTEPREDNOL ETABONATE [Suspect]
     Active Substance: LOTEPREDNOL ETABONATE
     Dosage: UNK, FOUR TIMES/DAY FOLLOWED BY A WEEKLY TAPERING SCHEDULE
     Route: 065
     Dates: start: 202107, end: 202111
  5. LOTEPREDNOL ETABONATE [Suspect]
     Active Substance: LOTEPREDNOL ETABONATE
     Dosage: 3 TIMES DAILY
     Route: 065
  6. COVID-19 vaccine [Concomitant]
     Indication: Product used for unknown indication
     Route: 065
     Dates: start: 202106
  7. COVID-19 vaccine [Concomitant]
     Route: 065
     Dates: start: 202112
  8. COVID-19 vaccine [Concomitant]
     Route: 065
     Dates: start: 202210

REACTIONS (3)
  - Punctate keratitis [Unknown]
  - Live birth [Unknown]
  - Maternal exposure during pregnancy [Unknown]
